FAERS Safety Report 8779932 (Version 1)
Quarter: 2012Q4

REPORT INFORMATION
  Report Type: 
  Country: US (occurrence: US)
  Receive Date: 20120912
  Receipt Date: 20120912
  Transmission Date: 20130627
  Serious: No
  Sender: FDA-Public Use
  Company Number: US-VERTEX PHARMACEUTICAL INC.-AE-2012-005612

PATIENT

DRUGS (3)
  1. INCIVEK [Suspect]
     Indication: HEPATITIS C
     Route: 048
     Dates: start: 20120406
  2. RIBSPHERE [Concomitant]
     Indication: HEPATITIS C
     Dates: start: 20120406
  3. PEGINTRON [Concomitant]
     Indication: HEPATITIS C
     Route: 058
     Dates: start: 20120406

REACTIONS (3)
  - Fatigue [Recovered/Resolved]
  - Nausea [Unknown]
  - Vomiting [Unknown]
